FAERS Safety Report 23456962 (Version 5)
Quarter: 2024Q1

REPORT INFORMATION
  Report Type: Spontaneous
  Country: US (occurrence: US)
  Receive Date: 20240130
  Receipt Date: 20240314
  Transmission Date: 20240410
  Serious: No
  Sender: FDA-Public Use
  Company Number: US-PFIZER INC-202400025962

PATIENT
  Age: 8 Year
  Sex: Male
  Weight: 39.002 kg

DRUGS (4)
  1. RAPAMUNE [Suspect]
     Active Substance: SIROLIMUS
     Indication: Interstitial lung disease
     Dosage: 1.8 MG, 2X/DAY
     Route: 048
     Dates: start: 202401
  2. ORENCIA [Concomitant]
     Active Substance: ABATACEPT
     Indication: Immunosuppressant drug therapy
     Dosage: EVERY OTHER WEEK
     Dates: start: 2023
  3. SYMBICORT [Concomitant]
     Active Substance: BUDESONIDE\FORMOTEROL FUMARATE DIHYDRATE
     Dosage: EVERY MORNING
  4. AZITHROMYCIN [Concomitant]
     Active Substance: AZITHROMYCIN
     Dosage: 7ML THREE TIMES A WEEK
     Dates: start: 2020

REACTIONS (9)
  - Vomiting [Unknown]
  - Abdominal pain upper [Unknown]
  - Arthralgia [Unknown]
  - Dysuria [Unknown]
  - Pyrexia [Unknown]
  - Malaise [Unknown]
  - Off label use [Unknown]
  - Off label use [Unknown]
  - Off label use [Unknown]

NARRATIVE: CASE EVENT DATE: 20240101
